FAERS Safety Report 7054046-8 (Version None)
Quarter: 2010Q4

REPORT INFORMATION
  Report Type: 
  Country: None (occurrence: None)
  Receive Date: 20101020
  Receipt Date: 20101019
  Transmission Date: 20110411
  Serious: Yes (Hospitalization)
  Sender: FDA-Public Use
  Company Number: IT-BRISTOL-MYERS SQUIBB COMPANY-15340672

PATIENT
  Age: 84 Year
  Sex: Female

DRUGS (3)
  1. COUMADIN [Suspect]
     Indication: ATRIAL FIBRILLATION
     Dosage: INTERRUPTED:29MAY2010
     Dates: start: 20100503
  2. CORDARONE [Concomitant]
     Dosage: CORDARONE 200 MG ORAL TABS
     Route: 048
     Dates: start: 20100430, end: 20100529
  3. LEUKERAN [Concomitant]
     Dosage: 2MG FILM COATED ORAL TABS
     Route: 048
     Dates: start: 20090709, end: 20100529

REACTIONS (3)
  - HAEMATURIA [None]
  - HAEMORRHAGE [None]
  - URINARY TRACT INFECTION BACTERIAL [None]
